FAERS Safety Report 21887627 (Version 1)
Quarter: 2023Q1

REPORT INFORMATION
  Report Type: Other
  Country: CN (occurrence: None)
  Receive Date: 20230120
  Receipt Date: 20230120
  Transmission Date: 20230418
  Serious: Yes (Other)
  Sender: FDA-Public Use
  Company Number: CN-ROCHE-3266829

PATIENT
  Age: 62 Year
  Sex: Female

DRUGS (11)
  1. BEVACIZUMAB [Suspect]
     Active Substance: BEVACIZUMAB
     Indication: Triple negative breast cancer
     Route: 041
     Dates: start: 20191124
  2. BEVACIZUMAB [Suspect]
     Active Substance: BEVACIZUMAB
     Route: 041
     Dates: start: 20191210
  3. BEVACIZUMAB [Suspect]
     Active Substance: BEVACIZUMAB
     Route: 041
     Dates: start: 20191224
  4. BEVACIZUMAB [Suspect]
     Active Substance: BEVACIZUMAB
     Route: 041
     Dates: start: 2020
  5. CAPECITABINE [Suspect]
     Active Substance: CAPECITABINE
     Indication: Triple negative breast cancer
     Dosage: 6 CYCLE
     Route: 048
     Dates: start: 2019
  6. PACLITAXEL [Suspect]
     Active Substance: PACLITAXEL
     Indication: Triple negative breast cancer
     Dosage: 6 CYCLE
     Route: 065
  7. ZOLEDRONIC ACID [Suspect]
     Active Substance: ZOLEDRONIC ACID
     Indication: Triple negative breast cancer
     Dosage: 6 CYCLE
     Route: 065
  8. DURVALUMAB [Suspect]
     Active Substance: DURVALUMAB
     Indication: Triple negative breast cancer
     Route: 065
  9. CYCLOPHOSPHAMIDE [Concomitant]
     Active Substance: CYCLOPHOSPHAMIDE
     Dosage: DAY 1
  10. PIRARUBICIN [Concomitant]
     Active Substance: PIRARUBICIN
     Dosage: DAY 1
  11. DOCETAXEL [Concomitant]
     Active Substance: DOCETAXEL
     Dosage: DAY 1 AND 2

REACTIONS (3)
  - Metastases to central nervous system [Recovering/Resolving]
  - Metastases to meninges [Recovering/Resolving]
  - Off label use [Unknown]
